FAERS Safety Report 8322146-8 (Version None)
Quarter: 2012Q2

REPORT INFORMATION
  Report Type: 
  Country: None (occurrence: None)
  Receive Date: 20120430
  Receipt Date: 20120425
  Transmission Date: 20120825
  Serious: Yes (Other)
  Sender: FDA-Public Use
  Company Number: US-AMGEN-USASP2011016861

PATIENT
  Age: 48 Year
  Sex: Female

DRUGS (1)
  1. ENBREL [Suspect]
     Indication: RHEUMATOID ARTHRITIS
     Dosage: 50 MG, QWK
     Route: 058
     Dates: start: 20110318

REACTIONS (13)
  - VIRAL INFECTION [None]
  - RESTLESSNESS [None]
  - HYPERHIDROSIS [None]
  - SENSATION OF FOREIGN BODY [None]
  - INSOMNIA [None]
  - PAIN [None]
  - ARTHRALGIA [None]
  - DYSPHAGIA [None]
  - NIGHT SWEATS [None]
  - JOINT STIFFNESS [None]
  - THROAT TIGHTNESS [None]
  - HYPOAESTHESIA [None]
  - PAIN IN EXTREMITY [None]
